FAERS Safety Report 7276553-5 (Version None)
Quarter: 2011Q1

REPORT INFORMATION
  Report Type: 
  Country: None (occurrence: None)
  Receive Date: 20110204
  Receipt Date: 20110201
  Transmission Date: 20110831
  Serious: Yes (Hospitalization)
  Sender: FDA-Public Use
  Company Number: US-ABBOTT-11P-163-0701393-00

PATIENT
  Sex: Female
  Weight: 68.1 kg

DRUGS (11)
  1. HUMIRA [Suspect]
     Indication: RHEUMATOID ARTHRITIS
     Dates: start: 20100802, end: 20101204
  2. VENLAFAXINE [Concomitant]
     Indication: DEPRESSION
  3. HUMIRA [Suspect]
     Dates: start: 20110117
  4. METHOTREXATE [Concomitant]
     Indication: RHEUMATOID ARTHRITIS
  5. MAXZIDE [Concomitant]
     Indication: HYPERTENSION
  6. BYSTOLIC [Concomitant]
     Indication: HYPERTENSION
  7. FOLIC ACID [Concomitant]
     Indication: VITAMIN SUPPLEMENTATION
  8. FLEXERIL [Concomitant]
     Indication: MUSCLE SPASMS
  9. OXYCONTIN [Concomitant]
     Indication: PAIN
  10. HYDROCODONE BITARTRATE [Concomitant]
     Indication: PAIN
  11. CHANTIX [Concomitant]
     Indication: EX-TOBACCO USER

REACTIONS (5)
  - ASTHENIA [None]
  - BLOOD POTASSIUM ABNORMAL [None]
  - PNEUMONIA [None]
  - PYREXIA [None]
  - DYSPNOEA [None]
